FAERS Safety Report 12631802 (Version 3)
Quarter: 2016Q3

REPORT INFORMATION
  Report Type: Spontaneous
  Country: US (occurrence: US)
  Receive Date: 20160808
  Receipt Date: 20160808
  Transmission Date: 20161109
  Serious: No
  Sender: FDA-Public Use
  Company Number: US-BEH-2016061071

PATIENT
  Age: 52 Year
  Sex: Female
  Weight: 86 kg

DRUGS (18)
  1. ACETAMINOPHEN. [Concomitant]
     Active Substance: ACETAMINOPHEN
  2. EPIPEN [Concomitant]
     Active Substance: EPINEPHRINE
  3. IRON [Concomitant]
     Active Substance: IRON
  4. NASACORT [Concomitant]
     Active Substance: TRIAMCINOLONE ACETONIDE
  5. CEFDINIR. [Concomitant]
     Active Substance: CEFDINIR
  6. ZEGERID [Concomitant]
     Active Substance: OMEPRAZOLE\SODIUM BICARBONATE
  7. MUCINEX [Concomitant]
     Active Substance: GUAIFENESIN
  8. VITAMIN D [Concomitant]
     Active Substance: CHOLECALCIFEROL
  9. LMX [Concomitant]
     Active Substance: LIDOCAINE
  10. DIPHENHYDRAMINE. [Concomitant]
     Active Substance: DIPHENHYDRAMINE
  11. DILAUDID [Concomitant]
     Active Substance: HYDROMORPHONE HYDROCHLORIDE
  12. HIZENTRA [Suspect]
     Active Substance: HUMAN IMMUNOGLOBULIN G
     Indication: IMMUNODEFICIENCY COMMON VARIABLE
     Route: 058
     Dates: start: 20140416
  13. FLONASE [Concomitant]
     Active Substance: FLUTICASONE PROPIONATE
  14. MULTIVITAMIN [Concomitant]
     Active Substance: VITAMINS
  15. LIDOCAINE/PRILOCAINE [Concomitant]
     Active Substance: LIDOCAINE\PRILOCAINE
  16. WELLBUTRIN [Concomitant]
     Active Substance: BUPROPION HYDROCHLORIDE
  17. MOTRIN [Concomitant]
     Active Substance: IBUPROFEN
  18. ZANTAC [Concomitant]
     Active Substance: RANITIDINE HYDROCHLORIDE

REACTIONS (1)
  - Sinusitis [Unknown]

NARRATIVE: CASE EVENT DATE: 20160107
